FAERS Safety Report 11713505 (Version 1)
Quarter: 2015Q4

REPORT INFORMATION
  Report Type: Spontaneous
  Country: US (occurrence: None)
  Receive Date: 20151106
  Receipt Date: 20151106
  Transmission Date: 20160304
  Serious: Yes (Life-Threatening, Disabling)
  Sender: FDA-Public Use
  Company Number: None

PATIENT
  Age: 29 Year
  Sex: Male
  Weight: 88.45 kg

DRUGS (1)
  1. MOXIFLOXACIN. [Suspect]
     Active Substance: MOXIFLOXACIN
     Indication: SINUSITIS
     Dosage: TAKEN BY MOUTH
     Dates: start: 20150208, end: 20150213

REACTIONS (18)
  - Fall [None]
  - Dyspepsia [None]
  - Hypohidrosis [None]
  - Bedridden [None]
  - Tremor [None]
  - Dizziness [None]
  - Nightmare [None]
  - Dysstasia [None]
  - Fear [None]
  - Asthenia [None]
  - Food intolerance [None]
  - Impaired work ability [None]
  - Fatigue [None]
  - Heart rate increased [None]
  - Malabsorption [None]
  - Blood pressure decreased [None]
  - Loss of consciousness [None]
  - Multiple chemical sensitivity [None]

NARRATIVE: CASE EVENT DATE: 20150213
